FAERS Safety Report 6520047-9 (Version None)
Quarter: 2009Q4

REPORT INFORMATION
  Report Type: 
  Country: None (occurrence: None)
  Receive Date: 20091229
  Receipt Date: 20091215
  Transmission Date: 20100525
  Serious: No
  Sender: FDA-Public Use
  Company Number: PHEH2009US10593

PATIENT
  Sex: Female

DRUGS (11)
  1. ZADITOR [Suspect]
     Indication: EYE ALLERGY
     Dosage: UNK, BID
     Dates: start: 20090908, end: 20090915
  2. ARTIFICIAL TEARS                        /USA/ [Concomitant]
     Dosage: UNK, BID
     Dates: start: 20090908, end: 20090915
  3. SYNTHROID [Concomitant]
     Dosage: 75 UG, QD
  4. MUCINEX [Concomitant]
     Dosage: 600 MG, BID
  5. CITRACAL + D [Concomitant]
     Dosage: 2 TABS, BID
  6. COLACE [Concomitant]
     Dosage: 1 CAP, QOD
  7. GAS X [Concomitant]
     Dosage: 1 CAP, QOD
  8. TYLENOL (CAPLET) [Concomitant]
     Dosage: 500 MG, PRN
  9. ALBUTEROL SULFATE AUTOHALER [Concomitant]
     Dosage: UNK, TID
  10. PULMICORT RESPULES [Concomitant]
     Dosage: UNK, BID
  11. VENTOLIN [Concomitant]
     Dosage: UNK, Q4H PRN

REACTIONS (2)
  - EYE SWELLING [None]
  - OCULAR HYPERAEMIA [None]
